FAERS Safety Report 25066749 (Version 1)
Quarter: 2025Q1

REPORT INFORMATION
  Report Type: Spontaneous
  Country: JP (occurrence: JP)
  Receive Date: 20250312
  Receipt Date: 20250312
  Transmission Date: 20250409
  Serious: Yes (Death, Hospitalization, Other)
  Sender: STRIDES
  Company Number: JP-STRIDES ARCOLAB LIMITED-2025SP003006

PATIENT
  Age: 72 Year
  Sex: Male

DRUGS (7)
  1. PREDNISOLONE [Suspect]
     Active Substance: PREDNISOLONE
     Indication: Myocarditis
     Route: 065
  2. METHYLPREDNISOLONE [Suspect]
     Active Substance: METHYLPREDNISOLONE
     Indication: Myocarditis
     Route: 065
  3. AVELUMAB [Concomitant]
     Active Substance: AVELUMAB
     Indication: Renal cell carcinoma
     Route: 042
  4. AXITINIB [Concomitant]
     Active Substance: AXITINIB
     Indication: Renal cell carcinoma
     Route: 048
  5. AXITINIB [Concomitant]
     Active Substance: AXITINIB
  6. CABOZANTINIB [Concomitant]
     Active Substance: CABOZANTINIB
     Indication: Renal cell carcinoma
     Route: 048
  7. NIVOLUMAB [Concomitant]
     Active Substance: NIVOLUMAB
     Indication: Metastases to liver
     Route: 042

REACTIONS (1)
  - Drug ineffective for unapproved indication [Fatal]
